FAERS Safety Report 4312676-8 (Version None)
Quarter: 2004Q1

REPORT INFORMATION
  Report Type: 
  Country: None (occurrence: None)
  Receive Date: 20040302
  Receipt Date: 20031106
  Transmission Date: 20041129
  Serious: No
  Sender: FDA-Public Use
  Company Number: 701291

PATIENT
  Age: 62 Year
  Sex: Female

DRUGS (5)
  1. AMEVIVE [Suspect]
     Indication: PSORIASIS
     Dosage: 15 MG QW IM
     Route: 030
     Dates: start: 20031009
  2. LEVOXYL [Concomitant]
  3. TRIAMTERENE [Concomitant]
  4. CIMETIDINE HCL [Concomitant]
  5. VERAPAMIL [Concomitant]

REACTIONS (1)
  - PHOTODERMATOSIS [None]
